FAERS Safety Report 5009834-6 (Version None)
Quarter: 2006Q2

REPORT INFORMATION
  Report Type: 
  Country: None (occurrence: None)
  Receive Date: 20060523
  Receipt Date: 20060523
  Transmission Date: 20061013
  Serious: Yes (Death, Hospitalization)
  Sender: FDA-Public Use
  Company Number: None

PATIENT
  Age: 47 Year
  Sex: Female

DRUGS (1)
  1. CALCIUM GLUCONATE [Suspect]
     Indication: BLOOD CALCIUM ABNORMAL
     Dosage: 1 GRAM

REACTIONS (6)
  - BLOOD MAGNESIUM DECREASED [None]
  - CONDITION AGGRAVATED [None]
  - DIZZINESS [None]
  - HEART RATE INCREASED [None]
  - HYPERCALCAEMIA [None]
  - RESPIRATORY RATE INCREASED [None]
